FAERS Safety Report 6891040-1 (Version None)
Quarter: 2010Q3

REPORT INFORMATION
  Report Type: 
  Country: None (occurrence: None)
  Receive Date: 20100731
  Receipt Date: 20090513
  Transmission Date: 20110219
  Serious: No
  Sender: FDA-Public Use
  Company Number: US-PFIZER INC-2009186279

PATIENT
  Sex: Female
  Weight: 61.234 kg

DRUGS (3)
  1. LIPITOR [Suspect]
     Indication: BLOOD CHOLESTEROL INCREASED
     Dosage: 10 MG, 1X/DAY
     Route: 048
  2. IBUPROFEN [Concomitant]
  3. VITAMINS [Concomitant]

REACTIONS (1)
  - MYALGIA [None]
